FAERS Safety Report 6834168-4 (Version None)
Quarter: 2010Q3

REPORT INFORMATION
  Report Type: 
  Country: None (occurrence: None)
  Receive Date: 20100712
  Receipt Date: 20070908
  Transmission Date: 20110219
  Serious: Yes (Other)
  Sender: FDA-Public Use
  Company Number: US-PFIZER INC-2007030146

PATIENT
  Sex: Female
  Weight: 65.8 kg

DRUGS (3)
  1. CHANTIX [Suspect]
     Indication: SMOKING CESSATION THERAPY
     Route: 048
     Dates: start: 20070316
  2. VITAMINS [Concomitant]
     Route: 048
  3. TUMS [Concomitant]
     Route: 048

REACTIONS (5)
  - CERVICOBRACHIAL SYNDROME [None]
  - FALL [None]
  - JOINT SWELLING [None]
  - MUSCULOSKELETAL PAIN [None]
  - OSTEOARTHRITIS [None]
